FAERS Safety Report 7379626-1 (Version None)
Quarter: 2011Q1

REPORT INFORMATION
  Report Type: 
  Country: None (occurrence: None)
  Receive Date: 20110318
  Receipt Date: 20110307
  Transmission Date: 20110831
  Serious: Yes (Life-Threatening, Hospitalization, Other)
  Sender: FDA-Public Use
  Company Number: FK201100398

PATIENT
  Age: 65 Year
  Sex: Male

DRUGS (2)
  1. VANCOMYCIN [Suspect]
     Indication: DRUG IMPLANTATION
     Dosage: VIA PERIPHERAL CENTRAL CATHETER LINE ; INTRAVENOUS (NOT OTHERWISE SPECIFIED)
     Route: 042
  2. VANCOMYCIN [Suspect]
     Indication: ANTIBIOTIC THERAPY
     Dosage: VIA PERIPHERAL CENTRAL CATHETER LINE ; INTRAVENOUS (NOT OTHERWISE SPECIFIED)
     Route: 042

REACTIONS (10)
  - SWELLING FACE [None]
  - DRUG RASH WITH EOSINOPHILIA AND SYSTEMIC SYMPTOMS [None]
  - BLOOD UREA INCREASED [None]
  - HAEMOGLOBIN DECREASED [None]
  - DYSPNOEA [None]
  - SEPSIS [None]
  - TYPE I HYPERSENSITIVITY [None]
  - HAEMODYNAMIC INSTABILITY [None]
  - BLOOD CREATININE DECREASED [None]
  - HYPOTENSION [None]
